FAERS Safety Report 17869870 (Version 1)
Quarter: 2020Q2

REPORT INFORMATION
  Report Type: Spontaneous
  Country: IN (occurrence: IN)
  Receive Date: 20200608
  Receipt Date: 20200608
  Transmission Date: 20200714
  Serious: Yes (Hospitalization, Other)
  Sender: FDA-Public Use
  Company Number: IN-ALVOGEN-2020-ALVOGEN-108527

PATIENT
  Age: 4 Year
  Sex: Female

DRUGS (1)
  1. DISULFIRAM. [Suspect]
     Active Substance: DISULFIRAM
     Indication: ACCIDENTAL EXPOSURE TO PRODUCT BY CHILD
     Dosage: 4-5 TABLETS AT A TIME

REACTIONS (7)
  - Toxicity to various agents [Unknown]
  - Encephalopathy [Unknown]
  - Hepatic enzyme increased [Unknown]
  - Hypoglycaemia [Unknown]
  - Accidental exposure to product by child [Unknown]
  - Heart rate increased [Unknown]
  - Respiratory distress [Unknown]
